FAERS Safety Report 10213292 (Version 2)
Quarter: 2014Q3

REPORT INFORMATION
  Report Type: Spontaneous
  Country: US (occurrence: None)
  Receive Date: 20140529
  Receipt Date: 20140717
  Transmission Date: 20150326
  Serious: Yes (Death, Hospitalization)
  Sender: FDA-Public Use
  Company Number: UNT-2014-000903

PATIENT
  Age: 60 Year
  Sex: Female
  Weight: 109.3 kg

DRUGS (2)
  1. COUMADIN /00014802/ (WARFARIN SODIUM) [Concomitant]
  2. REMODULIN [Suspect]
     Active Substance: TREPROSTINIL
     Indication: PULMONARY ARTERIAL HYPERTENSION
     Route: 041
     Dates: start: 20101214

REACTIONS (7)
  - Death [None]
  - Pneumonia [None]
  - Atrial flutter [None]
  - Hypoxia [None]
  - Cardiac failure congestive [None]
  - Pulmonary arterial hypertension [None]
  - Atrial septal defect [None]

NARRATIVE: CASE EVENT DATE: 20140516
